FAERS Safety Report 14947598 (Version 1)
Quarter: 2018Q2

REPORT INFORMATION
  Report Type: Spontaneous
  Country: US (occurrence: US)
  Receive Date: 20180508
  Receipt Date: 20180508
  Transmission Date: 20180711
  Serious: Yes (Other)
  Sender: FDA-Public Use
  Company Number: None

PATIENT
  Age: 68 Year
  Sex: Female

DRUGS (7)
  1. GLATOPA [Suspect]
     Active Substance: GLATIRAMER ACETATE
     Indication: MULTIPLE SCLEROSIS
     Route: 058
     Dates: start: 20150805
  2. ANTACID CHEW [Concomitant]
     Dates: start: 20180502
  3. CITALOPRAM [Concomitant]
     Active Substance: CITALOPRAM HYDROBROMIDE
     Dates: start: 20170126
  4. OXYCODONE AND ACETAMINOPHEN [Concomitant]
     Active Substance: ACETAMINOPHEN\OXYCODONE HYDROCHLORIDE
     Dates: start: 20180502
  5. ZOLPIDEM ER [Concomitant]
     Active Substance: ZOLPIDEM\ZOLPIDEM TARTRATE
     Dates: start: 20171226
  6. DOK [Concomitant]
     Active Substance: DOCUSATE SODIUM
     Dates: start: 20180502
  7. DULOXETINE. [Concomitant]
     Active Substance: DULOXETINE
     Dates: start: 20171208

REACTIONS (2)
  - Fatigue [None]
  - Hyperparathyroidism [None]
